FAERS Safety Report 7652989-5 (Version None)
Quarter: 2011Q3

REPORT INFORMATION
  Report Type: 
  Country: None (occurrence: None)
  Receive Date: 20110803
  Receipt Date: 20110802
  Transmission Date: 20111222
  Serious: Yes (Hospitalization, Other)
  Sender: FDA-Public Use
  Company Number: CH-PFIZER INC-2011175670

PATIENT
  Age: 62 Year
  Sex: Female

DRUGS (10)
  1. EFFEXOR XR [Suspect]
     Indication: DEPRESSION
     Dosage: 75 MG, 1X/DAY
     Route: 048
  2. CALCIMAGON-D3 [Concomitant]
     Indication: VITAMIN D DEFICIENCY
     Dosage: 500 MG, 2X/DAY
     Route: 048
  3. ZOLPIDEM [Suspect]
     Indication: INSOMNIA
     Dosage: 5 MG, 1X/DAY
     Route: 048
  4. METFORMIN [Suspect]
     Indication: TYPE 2 DIABETES MELLITUS
     Dosage: 500 MG, 2X/DAY
     Route: 048
     Dates: start: 20090101, end: 20110511
  5. INSULIN [Concomitant]
     Indication: TYPE 2 DIABETES MELLITUS
     Route: 058
  6. DIAMICRON [Concomitant]
     Indication: TYPE 2 DIABETES MELLITUS
     Dosage: 30 MG, 1X/DAY
     Dates: start: 20110510, end: 20110511
  7. LORAZEPAM [Suspect]
     Indication: DEPRESSION
     Dosage: 1 MG, 1X/DAY
     Route: 048
  8. SOLIAN [Concomitant]
     Indication: SCHIZOPHRENIA
     Dosage: 100 MG, 2X/DAY
     Route: 048
  9. REMERON [Suspect]
     Dosage: 15 MG, 1X/DAY
     Route: 048
  10. XANAX [Concomitant]
     Dosage: 0.5 MG, 1X/DAY

REACTIONS (2)
  - CHOLESTATIC LIVER INJURY [None]
  - HEPATIC STEATOSIS [None]
